FAERS Safety Report 19352436 (Version 2)
Quarter: 2022Q3

REPORT INFORMATION
  Report Type: Spontaneous
  Country: PT (occurrence: PT)
  Receive Date: 20210601
  Receipt Date: 20220803
  Transmission Date: 20221027
  Serious: Yes (Other)
  Sender: FDA-Public Use
  Company Number: PT-NOVARTISPH-NVSC2021PT117275

PATIENT
  Age: 36 Year
  Sex: Female

DRUGS (3)
  1. CARBAMAZEPINE [Interacting]
     Active Substance: CARBAMAZEPINE
     Indication: Epilepsy
     Dosage: 200 MG
     Route: 065
  2. VALPROIC ACID [Interacting]
     Active Substance: VALPROIC ACID
     Indication: Epilepsy
     Dosage: 300 MG
     Route: 065
  3. ETONOGESTREL [Interacting]
     Active Substance: ETONOGESTREL
     Indication: Product used for unknown indication
     Dosage: 1 DF (1 IMPLANT)
     Route: 059
     Dates: start: 20191119, end: 20210208

REACTIONS (3)
  - Drug interaction [Unknown]
  - Unintended pregnancy [Recovered/Resolved]
  - Pregnancy with implant contraceptive [Recovered/Resolved]
